FAERS Safety Report 7419496-6 (Version None)
Quarter: 2011Q1

REPORT INFORMATION
  Report Type: 
  Country: None (occurrence: None)
  Receive Date: 20110302
  Receipt Date: 20101029
  Transmission Date: 20110831
  Serious: No
  Sender: FDA-Public Use
  Company Number: 021333

PATIENT
  Age: 55 Year

DRUGS (2)
  1. CIMZIA [Suspect]
     Dosage: (400 MG 2X/MONTH SUBCUTANEOUS)
     Route: 058
  2. PREDNISONE [Concomitant]

REACTIONS (3)
  - VULVOVAGINAL MYCOTIC INFECTION [None]
  - ORAL FUNGAL INFECTION [None]
  - EYE INFECTION FUNGAL [None]
